FAERS Safety Report 9906759 (Version 1)
Quarter: 2014Q1

REPORT INFORMATION
  Report Type: Spontaneous
  Country: FR (occurrence: FR)
  Receive Date: 20140218
  Receipt Date: 20140218
  Transmission Date: 20141002
  Serious: Yes (Hospitalization)
  Sender: FDA-Public Use
  Company Number: FR-PFIZER INC-2014042437

PATIENT
  Age: 78 Year
  Sex: Female

DRUGS (4)
  1. NEURONTIN [Suspect]
     Indication: PAIN
     Dosage: UNK
     Route: 048
     Dates: start: 20131231, end: 20140113
  2. CELEBREX [Suspect]
     Indication: PAIN
     Dosage: UNK
     Route: 048
     Dates: start: 20140107, end: 20140115
  3. TOPALGIC [Concomitant]
     Indication: PAIN
     Dosage: UNK
     Route: 048
     Dates: start: 20131212, end: 20131226
  4. NOROXIN [Concomitant]
     Indication: CYSTITIS
     Dosage: UNK
     Route: 048
     Dates: start: 20131217, end: 20131226

REACTIONS (3)
  - Rash pustular [Recovering/Resolving]
  - Rash maculo-papular [Recovering/Resolving]
  - Pyrexia [Unknown]
